FAERS Safety Report 26194370 (Version 1)
Quarter: 2025Q4

REPORT INFORMATION
  Report Type: Spontaneous
  Country: US (occurrence: US)
  Receive Date: 20251224
  Receipt Date: 20251224
  Transmission Date: 20260117
  Serious: Yes (Disabling)
  Sender: MACLEODS
  Company Number: US-MLMSERVICE-20251210-PI744871-00057-1

PATIENT

DRUGS (3)
  1. ATORVASTATIN [Suspect]
     Active Substance: ATORVASTATIN
     Indication: Product used for unknown indication
     Dosage: LOW DOSE OF ATORVASTATIN 10 MG
     Route: 065
  2. ASPIRIN [Concomitant]
     Active Substance: ASPIRIN
     Indication: Product used for unknown indication
     Route: 065
  3. CLOPIDOGREL [Concomitant]
     Active Substance: CLOPIDOGREL BISULFATE
     Indication: Product used for unknown indication
     Route: 065

REACTIONS (2)
  - Autoimmune myositis [Recovered/Resolved]
  - Necrotising myositis [Recovered/Resolved]
